FAERS Safety Report 7037158-4 (Version None)
Quarter: 2010Q4

REPORT INFORMATION
  Report Type: 
  Country: None (occurrence: None)
  Receive Date: 20101011
  Receipt Date: 20101001
  Transmission Date: 20110411
  Serious: Yes (Other)
  Sender: FDA-Public Use
  Company Number: TR-NOVOPROD-306795

PATIENT
  Sex: Female
  Weight: 63 kg

DRUGS (1)
  1. NOVOMIX 30 FLEXPEN [Suspect]
     Indication: GESTATIONAL DIABETES
     Dosage: 20 IU, QD
     Route: 058
     Dates: start: 20100317, end: 20100610

REACTIONS (3)
  - DRUG EXPOSURE DURING PREGNANCY [None]
  - OLIGOHYDRAMNIOS [None]
  - STILLBIRTH [None]
